FAERS Safety Report 22156990 (Version 1)
Quarter: 2023Q1

REPORT INFORMATION
  Report Type: Spontaneous
  Country: EG (occurrence: EG)
  Receive Date: 20230330
  Receipt Date: 20230330
  Transmission Date: 20230417
  Serious: Yes (Death, Other)
  Sender: FDA-Public Use
  Company Number: EG-PFIZER INC-PV202200113201

PATIENT
  Age: 62 Year
  Sex: Male

DRUGS (4)
  1. XALKORI [Suspect]
     Active Substance: CRIZOTINIB
     Indication: Renal cell carcinoma
     Dosage: 250 MG, 2X/DAY (TWICE DAILY)
     Route: 048
     Dates: start: 20210616
  2. CONTROLOC [Concomitant]
     Active Substance: PANTOPRAZOLE SODIUM
     Dosage: 40 MG, 1X/DAY (ONE TAB DAILY BEFORE BREAKFAST)
  3. MOTILIUM [Concomitant]
     Active Substance: DOMPERIDONE
     Dosage: 1 DF, AS NEEDED (ONE TAB BEFORE MEALS WHEN NEEDED)
  4. ONDALENZ [Concomitant]
     Dosage: 1 DF, AS NEEDED (ONE FILM ON THE TONGUE WHEN NEEDED)

REACTIONS (2)
  - Death [Fatal]
  - Vomiting [Unknown]

NARRATIVE: CASE EVENT DATE: 20230324
